FAERS Safety Report 7937695-1 (Version None)
Quarter: 2011Q4

REPORT INFORMATION
  Report Type: 
  Country: None (occurrence: None)
  Receive Date: 20111123
  Receipt Date: 20111116
  Transmission Date: 20120403
  Serious: Yes (Hospitalization)
  Sender: FDA-Public Use
  Company Number: US-GLAXOSMITHKLINE-A0766687A

PATIENT
  Age: 73 Year
  Sex: Male
  Weight: 86.4 kg

DRUGS (9)
  1. AVANDAMET [Suspect]
     Indication: TYPE 2 DIABETES MELLITUS
     Route: 065
     Dates: start: 20040501, end: 20070101
  2. TRICOR [Concomitant]
  3. ASPIRIN [Concomitant]
  4. DIOVAN [Concomitant]
  5. AVANDIA [Suspect]
     Indication: TYPE 2 DIABETES MELLITUS
     Dosage: 2MG TWICE PER DAY
     Route: 048
     Dates: start: 20040501, end: 20070101
  6. GLYBURIDE [Concomitant]
  7. LOVAZA [Concomitant]
  8. METFORMIN [Concomitant]
     Dates: start: 20040101
  9. DIABETA [Concomitant]
     Dates: start: 20040101, end: 20070131

REACTIONS (16)
  - CARDIOMYOPATHY [None]
  - PULMONARY OEDEMA [None]
  - ATRIAL FIBRILLATION [None]
  - HYPERLIPIDAEMIA [None]
  - MYOCARDIAL INFARCTION [None]
  - MITRAL VALVE DISEASE [None]
  - ARTERIOSCLEROSIS [None]
  - PAIN [None]
  - CORONARY ARTERY DISEASE [None]
  - ISCHAEMIC CARDIOMYOPATHY [None]
  - PULMONARY HYPERTENSION [None]
  - VENTRICULAR EXTRASYSTOLES [None]
  - CARDIAC FAILURE CONGESTIVE [None]
  - PLEURAL EFFUSION [None]
  - ATRIOVENTRICULAR BLOCK FIRST DEGREE [None]
  - EXTRASYSTOLES [None]
